FAERS Safety Report 21399413 (Version 1)
Quarter: 2022Q4

REPORT INFORMATION
  Report Type: Spontaneous
  Country: US (occurrence: US)
  Receive Date: 20221001
  Receipt Date: 20221001
  Transmission Date: 20230113
  Serious: No
  Sender: FDA-Public Use
  Company Number: US-JNJFOC-20220951929

PATIENT
  Age: 67 Year
  Sex: Male

DRUGS (1)
  1. DARUNAVIR [Suspect]
     Active Substance: DARUNAVIR
     Indication: Product used for unknown indication
     Route: 048

REACTIONS (1)
  - Genotype drug resistance test positive [Unknown]
